FAERS Safety Report 6063675-X (Version None)
Quarter: 2009Q1

REPORT INFORMATION
  Report Type: 
  Country: None (occurrence: None)
  Receive Date: 20090129
  Receipt Date: 20090120
  Transmission Date: 20090719
  Serious: Yes (Death, Disabling)
  Sender: FDA-Public Use
  Company Number: OSCN-PR-0704S-0159

PATIENT
  Age: 71 Year
  Sex: Male

DRUGS (2)
  1. OMNISCAN [Suspect]
     Indication: DRUG USE FOR UNKNOWN INDICATION
     Dates: start: 20040701, end: 20040701
  2. EPOGEN [Concomitant]

REACTIONS (1)
  - NEPHROGENIC SYSTEMIC FIBROSIS [None]
